FAERS Safety Report 10221620 (Version 1)
Quarter: 2014Q1

REPORT INFORMATION
  Report Type: Spontaneous
  Country: US (occurrence: None)
  Receive Date: 20140306
  Receipt Date: 20140306
  Transmission Date: 20141002
  Serious: Yes (Hospitalization)
  Sender: FDA-Public Use
  Company Number: 163-21880-13101879

PATIENT
  Age: 72 Year
  Sex: Female

DRUGS (1)
  1. REVLIMID (LENALIDOMIDE) (5 MILLIGRAM, CAPSULES) [Suspect]
     Indication: MYELODYSPLASTIC SYNDROME
     Route: 048
     Dates: start: 20130915, end: 20130922

REACTIONS (7)
  - Pyrexia [None]
  - Back pain [None]
  - Abdominal pain [None]
  - Nausea [None]
  - Infection [None]
  - Full blood count decreased [None]
  - White blood cell count decreased [None]
